FAERS Safety Report 19954909 (Version 1)
Quarter: 2021Q4

REPORT INFORMATION
  Report Type: Spontaneous
  Country: US (occurrence: US)
  Receive Date: 20211014
  Receipt Date: 20211014
  Transmission Date: 20220303
  Serious: No
  Sender: FDA-Public Use
  Company Number: US-APOTEX-2021AP043757

PATIENT
  Age: 58 Year
  Sex: Female

DRUGS (1)
  1. APO-VARENICLINE [Suspect]
     Active Substance: VARENICLINE TARTRATE
     Indication: Smoking cessation therapy
     Dosage: 1 MILLIGRAM, QD
     Route: 048
     Dates: start: 20210925, end: 20210927

REACTIONS (5)
  - Pruritus [Recovering/Resolving]
  - Reading disorder [Recovering/Resolving]
  - Swelling [Recovering/Resolving]
  - Dyspnoea [Recovering/Resolving]
  - Rash [Recovering/Resolving]

NARRATIVE: CASE EVENT DATE: 20210927
